FAERS Safety Report 21176797 (Version 1)
Quarter: 2022Q3

REPORT INFORMATION
  Report Type: Spontaneous
  Country: JP (occurrence: JP)
  Receive Date: 20220805
  Receipt Date: 20220805
  Transmission Date: 20221026
  Serious: Yes (Other)
  Sender: FDA-Public Use
  Company Number: JP-GSKNCCC-Case-01546303_AE-60785

PATIENT

DRUGS (1)
  1. FLUTICASONE FUROATE\VILANTEROL TRIFENATATE [Suspect]
     Active Substance: FLUTICASONE FUROATE\VILANTEROL TRIFENATATE
     Dosage: UNK, QD IN MORNING
     Route: 055

REACTIONS (5)
  - Cerebral infarction [Unknown]
  - Atrial fibrillation [Unknown]
  - Angina pectoris [Unknown]
  - Gait disturbance [Unknown]
  - Chest discomfort [Unknown]
